FAERS Safety Report 9059414 (Version 3)
Quarter: 2013Q3

REPORT INFORMATION
  Report Type: Spontaneous
  Country: JP (occurrence: JP)
  Receive Date: 20130211
  Receipt Date: 20130705
  Transmission Date: 20140515
  Serious: Yes (Hospitalization, Other)
  Sender: FDA-Public Use
  Company Number: JP-GLAXOSMITHKLINE-B0866488A

PATIENT
  Age: 66 Year
  Sex: Female
  Weight: 49 kg

DRUGS (5)
  1. HYCAMTIN [Suspect]
     Indication: OVARIAN EPITHELIAL CANCER RECURRENT
     Route: 042
     Dates: start: 20120410, end: 20120521
  2. BAKTAR [Concomitant]
     Dosage: 4U PER DAY
     Route: 048
     Dates: start: 20120503, end: 20120506
  3. CRAVIT [Concomitant]
     Dosage: 500MG PER DAY
     Route: 048
     Dates: start: 20120507, end: 20120511
  4. IRINOTECAN HYDROCHLORIDE [Concomitant]
     Indication: OVARIAN EPITHELIAL CANCER RECURRENT
     Dates: start: 20110929, end: 20120322
  5. CISPLATIN [Concomitant]
     Indication: OVARIAN EPITHELIAL CANCER RECURRENT
     Dates: start: 20110929, end: 20120322

REACTIONS (6)
  - White blood cell count decreased [Recovered/Resolved]
  - Neutrophil count decreased [Recovered/Resolved]
  - Anaemia [Recovering/Resolving]
  - Platelet count decreased [Recovered/Resolved]
  - Chondrocalcinosis pyrophosphate [Recovered/Resolved]
  - Febrile neutropenia [Recovered/Resolved]
